FAERS Safety Report 6166998-9 (Version None)
Quarter: 2009Q2

REPORT INFORMATION
  Report Type: 
  Country: None (occurrence: None)
  Receive Date: 20090424
  Receipt Date: 20090417
  Transmission Date: 20091009
  Serious: Yes (Hospitalization)
  Sender: FDA-Public Use
  Company Number: US-GILEAD-2009-0020915

PATIENT
  Sex: Female

DRUGS (11)
  1. LETAIRIS [Suspect]
     Indication: PULMONARY HYPERTENSION
     Route: 048
     Dates: start: 20081202
  2. FERROUS SULFATE TAB [Concomitant]
  3. NEXIUM [Concomitant]
  4. RECLAST [Concomitant]
  5. MACROBID [Concomitant]
  6. AMLODIPINE [Concomitant]
  7. LEVOTHYROXINE [Concomitant]
  8. OXYBUTYN [Concomitant]
  9. AMITRIPTLINE HYDROCHLORIDE TAB [Concomitant]
  10. LOMOTIL [Concomitant]
  11. PILOCARPINE [Concomitant]

REACTIONS (2)
  - ANAEMIA [None]
  - OEDEMA PERIPHERAL [None]
